FAERS Safety Report 10881211 (Version 3)
Quarter: 2015Q2

REPORT INFORMATION
  Report Type: Spontaneous
  Country: US (occurrence: US)
  Receive Date: 20150303
  Receipt Date: 20150401
  Transmission Date: 20150821
  Serious: Yes (Hospitalization, Other)
  Sender: FDA-Public Use
  Company Number: US-PFIZER INC-2015072446

PATIENT
  Age: 70 Year
  Sex: Female
  Weight: 73 kg

DRUGS (3)
  1. TOPROL XL [Concomitant]
     Active Substance: METOPROLOL SUCCINATE
     Indication: HYPERTENSION
     Dosage: 25 MG, DAILY
     Route: 048
  2. LYRICA [Suspect]
     Active Substance: PREGABALIN
     Indication: SCIATICA
     Dosage: 25 MG, 2X/DAY
     Route: 048
     Dates: start: 20150128, end: 20150208
  3. PEPCID [Concomitant]
     Active Substance: FAMOTIDINE
     Dosage: 1 DF, UNK (20 MG IV ONCE DILUTE WITH 3 ML NACL 0.9% AND GIVE OVER 2 MINUTES 20 MG (2ML)
     Route: 042

REACTIONS (16)
  - Formication [Not Recovered/Not Resolved]
  - Hypersensitivity [Recovering/Resolving]
  - Muscular weakness [Not Recovered/Not Resolved]
  - Feeling cold [Not Recovered/Not Resolved]
  - Photophobia [Recovering/Resolving]
  - Burning sensation [Unknown]
  - Gait disturbance [Unknown]
  - Dry skin [Not Recovered/Not Resolved]
  - Skin exfoliation [Not Recovered/Not Resolved]
  - Stomatitis [Recovered/Resolved]
  - Pruritus [Not Recovered/Not Resolved]
  - Eye disorder [Unknown]
  - Tremor [Not Recovered/Not Resolved]
  - Urticaria [Recovering/Resolving]
  - Peripheral vascular disorder [Not Recovered/Not Resolved]
  - Muscle twitching [Not Recovered/Not Resolved]

NARRATIVE: CASE EVENT DATE: 201502
